FAERS Safety Report 25319990 (Version 1)
Quarter: 2025Q2

REPORT INFORMATION
  Report Type: Spontaneous
  Country: FR (occurrence: FR)
  Receive Date: 20250515
  Receipt Date: 20250515
  Transmission Date: 20250716
  Serious: Yes (Hospitalization)
  Sender: GLAXOSMITHKLINE
  Company Number: None

PATIENT

DRUGS (2)
  1. LAMOTRIGINE [Suspect]
     Active Substance: LAMOTRIGINE
     Indication: Bipolar disorder
     Dosage: 200 MG, QD
     Route: 064
     Dates: start: 20231223, end: 20240904
  2. ARIPIPRAZOLE [Suspect]
     Active Substance: ARIPIPRAZOLE
     Indication: Bipolar disorder
     Route: 064
     Dates: start: 20231223, end: 20240904

REACTIONS (5)
  - Selective eating disorder [Recovered/Resolved]
  - Somnolence [Recovered/Resolved]
  - Poor sucking reflex [Recovered/Resolved]
  - Hypotonia [Recovered/Resolved]
  - Foetal exposure during pregnancy [Unknown]

NARRATIVE: CASE EVENT DATE: 20231223
